FAERS Safety Report 14587553 (Version 2)
Quarter: 2018Q1

REPORT INFORMATION
  Report Type: Spontaneous
  Country: US (occurrence: US)
  Receive Date: 20180301
  Receipt Date: 20180329
  Transmission Date: 20180509
  Serious: No
  Sender: FDA-Public Use
  Company Number: US-ASTRAZENECA-2018SE13102

PATIENT
  Age: 77 Year
  Sex: Female
  Weight: 75.8 kg

DRUGS (8)
  1. PULMICORT FLEXHALER [Suspect]
     Active Substance: BUDESONIDE
     Indication: EMPHYSEMA
     Dosage: 180 MICROGRAMS ONE PUFF TWICE A DAY
     Route: 055
     Dates: start: 20171129
  2. COMBIVENT [Concomitant]
     Active Substance: ALBUTEROL SULFATE\IPRATROPIUM BROMIDE
     Dosage: UNKNOWN
     Route: 065
  3. PULMICORT FLEXHALER [Suspect]
     Active Substance: BUDESONIDE
     Indication: CHRONIC OBSTRUCTIVE PULMONARY DISEASE
     Dosage: 180 MICROGRAMS ONE PUFF TWICE A DAY
     Route: 055
     Dates: start: 20171125
  4. ALBUTEREROL NEBULIZER [Concomitant]
     Dosage: UNKNOWN
     Route: 065
  5. PROAIR HFA [Concomitant]
     Active Substance: ALBUTEROL SULFATE
     Dosage: UNKNOWN
     Route: 065
  6. PULMICORT FLEXHALER [Suspect]
     Active Substance: BUDESONIDE
     Indication: EMPHYSEMA
     Dosage: 180 MICROGRAMS ONE PUFF TWICE A DAY
     Route: 055
     Dates: start: 20171125
  7. PULMICORT FLEXHALER [Suspect]
     Active Substance: BUDESONIDE
     Indication: CHRONIC OBSTRUCTIVE PULMONARY DISEASE
     Dosage: 180 MICROGRAMS ONE PUFF TWICE A DAY
     Route: 055
     Dates: start: 20171129
  8. SPIRIVA [Concomitant]
     Active Substance: TIOTROPIUM BROMIDE MONOHYDRATE
     Dosage: UNKNOWN
     Route: 065

REACTIONS (6)
  - Off label use [Not Recovered/Not Resolved]
  - Dysgeusia [Unknown]
  - Product use in unapproved indication [Not Recovered/Not Resolved]
  - Drug dose omission [Unknown]
  - Chronic obstructive pulmonary disease [Unknown]
  - Device failure [Unknown]

NARRATIVE: CASE EVENT DATE: 2017
